FAERS Safety Report 4333160-1 (Version None)
Quarter: 2004Q2

REPORT INFORMATION
  Report Type: 
  Country: None (occurrence: None)
  Receive Date: 20040405
  Receipt Date: 20040405
  Transmission Date: 20050107
  Serious: Yes (Disabling)
  Sender: FDA-Public Use
  Company Number: None

PATIENT
  Sex: Female
  Weight: 58.9676 kg

DRUGS (1)
  1. ZICAM COLD REMEDY ZINCUM GLUCONICUM 2X ZICAM LLC PHOENIX, AZ [Suspect]
     Dosage: SPRAY 1X EA NOS NASAL
     Route: 045
     Dates: start: 20040128, end: 20040128

REACTIONS (6)
  - AGEUSIA [None]
  - ANOSMIA [None]
  - BURNING SENSATION [None]
  - EPISTAXIS [None]
  - EYE SWELLING [None]
  - THROAT IRRITATION [None]
